FAERS Safety Report 17070086 (Version 2)
Quarter: 2019Q4

REPORT INFORMATION
  Report Type: Spontaneous
  Country: AT (occurrence: AT)
  Receive Date: 20191125
  Receipt Date: 20191220
  Transmission Date: 20200122
  Serious: No
  Sender: FDA-Public Use
  Company Number: AT-BEH-2019109784

PATIENT
  Age: 54 Year
  Sex: Female

DRUGS (3)
  1. HIZENTRA [Suspect]
     Active Substance: HUMAN IMMUNOGLOBULIN G
     Indication: COLLAGEN DISORDER
     Dosage: 200 MILLIGRAM, QMT
     Route: 065
     Dates: start: 201610
  2. HIZENTRA [Suspect]
     Active Substance: HUMAN IMMUNOGLOBULIN G
     Dosage: UNK
     Route: 065
     Dates: start: 201911
  3. HIZENTRA [Suspect]
     Active Substance: HUMAN IMMUNOGLOBULIN G
     Dosage: UNK
     Route: 065

REACTIONS (4)
  - Injection site erythema [Unknown]
  - No adverse event [Unknown]
  - Injection site inflammation [Recovered/Resolved]
  - Product use in unapproved indication [Unknown]
